FAERS Safety Report 7994359-6 (Version None)
Quarter: 2011Q4

REPORT INFORMATION
  Report Type: 
  Country: None (occurrence: None)
  Receive Date: 20111220
  Receipt Date: 20111024
  Transmission Date: 20120403
  Serious: No
  Sender: FDA-Public Use
  Company Number: US-GLAXOSMITHKLINE-A0950254A

PATIENT
  Age: 51 Year
  Sex: Female

DRUGS (9)
  1. HYDROCODONE [Concomitant]
  2. NORVASC [Concomitant]
  3. HYZAAR [Concomitant]
  4. CEPHALEXIN [Concomitant]
  5. CYMBALTA [Concomitant]
  6. SORIATANE [Suspect]
     Indication: PSORIASIS
     Dosage: 10MG PER DAY
     Route: 048
     Dates: start: 20110401
  7. MYCOPHENOLATE MOFETIL [Concomitant]
  8. LAMOTRIGINE [Concomitant]
  9. BACLOFEN [Concomitant]

REACTIONS (10)
  - PANIC ATTACK [None]
  - DYSPNOEA [None]
  - ALOPECIA [None]
  - ARTHRALGIA [None]
  - ILL-DEFINED DISORDER [None]
  - SKIN EXFOLIATION [None]
  - ACNE [None]
  - CHAPPED LIPS [None]
  - CHROMATURIA [None]
  - DRY MOUTH [None]
